FAERS Safety Report 4566409-0 (Version None)
Quarter: 2005Q1

REPORT INFORMATION
  Report Type: 
  Country: None (occurrence: None)
  Receive Date: 20050128
  Receipt Date: 20050112
  Transmission Date: 20050727
  Serious: Yes (Other)
  Sender: FDA-Public Use
  Company Number: 200510234BCC

PATIENT
  Sex: Female

DRUGS (6)
  1. ALEVE [Suspect]
     Indication: ARTHRITIS
     Dosage: SEE IMAGE
     Route: 048
  2. ALEVE [Suspect]
     Indication: ARTHRITIS
     Dosage: SEE IMAGE
     Route: 048
     Dates: start: 20041101
  3. CALAN [Concomitant]
  4. INDERAL [Concomitant]
  5. FLEXERIL [Concomitant]
  6. PROPACET 100 [Concomitant]

REACTIONS (2)
  - ASTHENIA [None]
  - BLOOD PRESSURE INCREASED [None]
